FAERS Safety Report 7806225-7 (Version None)
Quarter: 2011Q4

REPORT INFORMATION
  Report Type: 
  Country: None (occurrence: None)
  Receive Date: 20111011
  Receipt Date: 20111004
  Transmission Date: 20120403
  Serious: Yes (Death)
  Sender: FDA-Public Use
  Company Number: GB-AMGEN-GBRCT2011024519

PATIENT
  Age: 38 Year
  Sex: Female

DRUGS (19)
  1. VITAMIN B COMPLEX CAP [Concomitant]
     Dosage: UNK UNK, QD
  2. NIFEDIPINE [Concomitant]
     Dosage: 30 MG, UNK
  3. GALFER [Concomitant]
     Dosage: UNK UNK, QD
  4. RENAGEL [Concomitant]
     Dosage: 800 UNK, UNK
  5. DICLOFENAC SODIUM [Concomitant]
     Dosage: 25 MG, QD
  6. MORPHINE [Concomitant]
     Dosage: 40 MG, TID
  7. VENOFER [Concomitant]
  8. BLINDED PLACEBO [Suspect]
     Indication: HYPERPARATHYROIDISM SECONDARY
     Dates: start: 20070104, end: 20110505
  9. SENNA [Concomitant]
  10. ALFACALCIDOL [Concomitant]
     Dosage: 2 MUG, 3 TIMES/WK
  11. OMEPRAZOLE [Concomitant]
     Dosage: 20 MG, BID
  12. ATENOLOL [Concomitant]
     Dosage: UNK UNK, QD
  13. ASCORBIC ACID [Concomitant]
     Dosage: UNK UNK, QD
  14. CINACALCET HYDROCHLORIDE [Suspect]
     Indication: HYPERPARATHYROIDISM SECONDARY
     Dates: start: 20070104, end: 20110505
  15. ARANESP [Concomitant]
     Dosage: 60 MUG, QWK
  16. LANSOPRAZOLE [Concomitant]
  17. NORETHINDRONE [Concomitant]
     Dosage: UNK UNK, TID
  18. WARFARIN SODIUM [Concomitant]
     Dosage: UNK UNK, PRN
  19. SODIUM BICARBONATE [Concomitant]
     Dosage: 500 MG, TID

REACTIONS (1)
  - RETROPERITONEAL HAEMORRHAGE [None]
